FAERS Safety Report 24765983 (Version 1)
Quarter: 2024Q4

REPORT INFORMATION
  Report Type: Spontaneous
  Country: BR (occurrence: BR)
  Receive Date: 20241223
  Receipt Date: 20241223
  Transmission Date: 20250115
  Serious: Yes (Hospitalization)
  Sender: MYLAN
  Company Number: BR-MYLANLABS-2024M1114880

PATIENT
  Age: 46 Year
  Sex: Male

DRUGS (2)
  1. SERTRALINE [Interacting]
     Active Substance: SERTRALINE HYDROCHLORIDE
     Indication: Product used for unknown indication
     Dosage: UNK
     Route: 065
     Dates: end: 20241113
  2. ZYVOX [Interacting]
     Active Substance: LINEZOLID
     Indication: Infection
     Dosage: UNK
     Route: 065
     Dates: start: 20241111

REACTIONS (6)
  - Hospitalisation [Unknown]
  - Infection [Unknown]
  - Hyperglycaemia [Unknown]
  - Abnormal behaviour [Unknown]
  - Agitation [Unknown]
  - Drug interaction [Recovered/Resolved]

NARRATIVE: CASE EVENT DATE: 20241111
